FAERS Safety Report 9349396 (Version 1)
Quarter: 2013Q2

REPORT INFORMATION
  Report Type: Spontaneous
  Country: US (occurrence: US)
  Receive Date: 20130614
  Receipt Date: 20130614
  Transmission Date: 20140414
  Serious: No
  Sender: FDA-Public Use
  Company Number: US-TEVA-366616USA

PATIENT
  Sex: 0

DRUGS (3)
  1. CISPLATIN [Suspect]
     Dosage: ON DAYS 1-5 FOR EACH CHEMOTHERAPY CYCLE
  2. ETOPOSIDE [Suspect]
     Dosage: ON DAYS 1-5 FOR EACH CHEMOTHERAPY CYCLE
  3. BLEOMYCIN [Suspect]
     Dosage: ONCE WEEKLY FOR 5 DOSES

REACTIONS (2)
  - Nausea [Not Recovered/Not Resolved]
  - Vomiting [Not Recovered/Not Resolved]
